FAERS Safety Report 20686004 (Version 1)
Quarter: 2022Q2

REPORT INFORMATION
  Report Type: Spontaneous
  Country: US (occurrence: US)
  Receive Date: 20220407
  Receipt Date: 20220407
  Transmission Date: 20220721
  Serious: No
  Sender: FDA-Public Use
  Company Number: US-JAZZ-2022-US-008733

PATIENT
  Sex: Female

DRUGS (10)
  1. SUNOSI [Suspect]
     Active Substance: SOLRIAMFETOL
     Indication: Narcolepsy
  2. SUNOSI [Suspect]
     Active Substance: SOLRIAMFETOL
     Indication: Cataplexy
  3. SUNOSI [Suspect]
     Active Substance: SOLRIAMFETOL
     Indication: Somnolence
  4. ARMODAFINIL [Concomitant]
     Active Substance: ARMODAFINIL
     Dosage: UNK
     Dates: start: 20220105
  5. AZELASTINE [Concomitant]
     Active Substance: AZELASTINE
     Dosage: UNK
     Dates: start: 20200831
  6. CLOBETASOL [Concomitant]
     Active Substance: CLOBETASOL
     Dosage: UNK
     Dates: start: 20210831
  7. ESCITALOPRAM [Concomitant]
     Active Substance: ESCITALOPRAM OXALATE
     Dosage: UNK
     Dates: start: 20211213
  8. ESTRADIOL [Concomitant]
     Active Substance: ESTRADIOL
     Dosage: UNK
     Dates: start: 20211018
  9. FLONASE ALLERGY RELIEF [Concomitant]
     Active Substance: FLUTICASONE PROPIONATE
     Dosage: UNK
     Dates: start: 20201203
  10. SLYND [Concomitant]
     Active Substance: DROSPIRENONE
     Dosage: UNK
     Dates: start: 20211124

REACTIONS (1)
  - Fatigue [Unknown]
